FAERS Safety Report 19909286 (Version 2)
Quarter: 2022Q3

REPORT INFORMATION
  Report Type: Spontaneous
  Country: US (occurrence: US)
  Receive Date: 20211001
  Receipt Date: 20220929
  Transmission Date: 20221027
  Serious: No
  Sender: FDA-Public Use
  Company Number: US-AMARIN PHARMA, INC.-2021AMR000144

PATIENT
  Age: 60 Year
  Sex: Male

DRUGS (1)
  1. VASCEPA [Suspect]
     Active Substance: ICOSAPENT ETHYL
     Indication: Cardiovascular event prophylaxis
     Route: 048

REACTIONS (3)
  - Product residue present [Not Recovered/Not Resolved]
  - Drug ineffective [Unknown]
  - Product physical issue [Not Recovered/Not Resolved]
